FAERS Safety Report 5335181-9 (Version None)
Quarter: 2007Q2

REPORT INFORMATION
  Report Type: 
  Country: None (occurrence: None)
  Receive Date: 20070525
  Receipt Date: 20070516
  Transmission Date: 20071010
  Serious: Yes (Death, Other)
  Sender: FDA-Public Use
  Company Number: JP-PFIZER INC-2007035271

PATIENT
  Age: 70 Year
  Sex: Male

DRUGS (1)
  1. SULPERAZON [Suspect]
     Route: 042

REACTIONS (2)
  - CONVULSION [None]
  - RENAL FAILURE CHRONIC [None]
